FAERS Safety Report 17765997 (Version 1)
Quarter: 2020Q2

REPORT INFORMATION
  Report Type: Spontaneous
  Country: US (occurrence: US)
  Receive Date: 20200511
  Receipt Date: 20200511
  Transmission Date: 20200714
  Serious: No
  Sender: FDA-Public Use
  Company Number: US-BAYER-2020-074441

PATIENT
  Sex: Female

DRUGS (3)
  1. PROGESTIN BAY1007626 [Suspect]
     Active Substance: PROGESTERONE
     Indication: MENSTRUAL CYCLE MANAGEMENT
  2. MIRENA [Suspect]
     Active Substance: LEVONORGESTREL
     Dosage: 20 ?G PER DAY CONTINOUSLY
     Route: 015
  3. PROGESTIN BAY1007626 [Suspect]
     Active Substance: PROGESTERONE
     Indication: CONTRACEPTION
     Dosage: 35 MG, QD
     Route: 048

REACTIONS (2)
  - Complication of device insertion [None]
  - Metrorrhagia [None]
